FAERS Safety Report 21424121 (Version 2)
Quarter: 2022Q4

REPORT INFORMATION
  Report Type: Spontaneous
  Country: DE (occurrence: DE)
  Receive Date: 20221007
  Receipt Date: 20221021
  Transmission Date: 20230113
  Serious: Yes (Other)
  Sender: FDA-Public Use
  Company Number: DE-LUNDBECK-DKLU3053004

PATIENT
  Sex: Male

DRUGS (2)
  1. CITALOPRAM HYDROBROMIDE [Interacting]
     Active Substance: CITALOPRAM HYDROBROMIDE
     Indication: Depression
     Dosage: 20 MG, QAM
     Route: 048
  2. ASPIRIN [Interacting]
     Active Substance: ASPIRIN
     Indication: Angiopathy
     Dosage: UNK

REACTIONS (4)
  - Cerebral haemorrhage [Unknown]
  - Angiopathy [Unknown]
  - Confusional state [Recovered/Resolved]
  - Drug interaction [Unknown]
